FAERS Safety Report 6178187-2 (Version None)
Quarter: 2009Q2

REPORT INFORMATION
  Report Type: 
  Country: None (occurrence: None)
  Receive Date: 20090504
  Receipt Date: 20090424
  Transmission Date: 20091009
  Serious: Yes (Disabling)
  Sender: FDA-Public Use
  Company Number: US-JNJFOC-20090406804

PATIENT
  Sex: Male

DRUGS (1)
  1. LEVAQUIN [Suspect]
     Indication: EPIDIDYMITIS

REACTIONS (3)
  - MENTAL DISORDER DUE TO A GENERAL MEDICAL CONDITION [None]
  - NEUROPATHY PERIPHERAL [None]
  - TENDON INJURY [None]
